FAERS Safety Report 8699188 (Version 2)
Quarter: 2012Q4

REPORT INFORMATION
  Report Type: 
  Country: IT (occurrence: IT)
  Receive Date: 20120802
  Receipt Date: 20120905
  Transmission Date: 20130627
  Serious: Yes (Hospitalization)
  Sender: FDA-Public Use
  Company Number: PHHY2012IT063326

PATIENT
  Age: 9 Year
  Sex: Female

DRUGS (4)
  1. BECLOMETHASONE [Suspect]
     Indication: ASTHMA
     Dosage: 0.8 mg, daily
  2. SALBUTAMOL [Suspect]
     Indication: ASTHMA
     Dosage: 6 mg, daily
  3. UNSPECIFIED INGREDIENT [Suspect]
  4. CORTICOSTEROIDS [Suspect]

REACTIONS (1)
  - Cystitis haemorrhagic [Unknown]
